FAERS Safety Report 4854908-3 (Version None)
Quarter: 2005Q4

REPORT INFORMATION
  Report Type: 
  Country: None (occurrence: None)
  Receive Date: 20051213
  Receipt Date: 20051201
  Transmission Date: 20060501
  Serious: Yes (Other)
  Sender: FDA-Public Use
  Company Number: 2005131166

PATIENT
  Age: 60 Year
  Sex: Male
  Weight: 75 kg

DRUGS (13)
  1. VFEND [Suspect]
     Indication: ASPERGILLOSIS
     Dosage: INTRAVENOUS
     Route: 042
     Dates: start: 20050913, end: 20050918
  2. MORPHINE [Suspect]
     Indication: ILL-DEFINED DISORDER
     Dosage: 20-40 MILLIGRAM (DAILY), INTRAVENOUS
     Route: 042
     Dates: start: 20050831, end: 20050918
  3. TIENAM (CILASTATIN, IMIPENEM) [Concomitant]
  4. FLUCONAZOLE [Concomitant]
  5. COLIMYCINE (COLISTIN MESILATE SODIUM) [Concomitant]
  6. AUGMENTIN '125' [Concomitant]
  7. VANCOMYCIN HYDROCHLORIDE [Concomitant]
  8. METRONIDAZOLE [Concomitant]
  9. TAZOCILLINE (PIPERACILLIN SODIUM, TAZOBACTAM SODIUM) [Concomitant]
  10. PLITICAN (ALIZAPRIDE HYDROCHLORIDE) [Concomitant]
  11. IDARUBICIN HCL [Concomitant]
  12. CYTARABINE [Concomitant]
  13. LOMUSTINE (LOMUSTINE) [Concomitant]

REACTIONS (7)
  - AMNESIA [None]
  - CONFUSIONAL STATE [None]
  - DISORIENTATION [None]
  - HALLUCINATION, VISUAL [None]
  - LOSS OF CONSCIOUSNESS [None]
  - PYREXIA [None]
  - SUICIDAL IDEATION [None]
